FAERS Safety Report 14007708 (Version 2)
Quarter: 2017Q3

REPORT INFORMATION
  Report Type: Spontaneous
  Country: BR (occurrence: BR)
  Receive Date: 20170925
  Receipt Date: 20170928
  Transmission Date: 20171128
  Serious: Yes (Hospitalization, Other)
  Sender: FDA-Public Use
  Company Number: BR-BAUSCH-BL-2017-027483

PATIENT
  Age: 68 Year
  Sex: Female
  Weight: 67 kg

DRUGS (6)
  1. TIMOPTOL-XE [Suspect]
     Active Substance: TIMOLOL
     Indication: GLAUCOMA
     Route: 065
     Dates: start: 2007, end: 201708
  2. TIMOPTOL-XE [Suspect]
     Active Substance: TIMOLOL
     Route: 065
     Dates: start: 201708, end: 201709
  3. SELOZOK [Concomitant]
     Active Substance: METOPROLOL SUCCINATE
     Indication: ARRHYTHMIA
     Dates: start: 2009
  4. TIMOPTOL-XE [Suspect]
     Active Substance: TIMOLOL
     Route: 065
     Dates: start: 201709
  5. SIMVASTATIN. [Suspect]
     Active Substance: SIMVASTATIN
     Indication: PRODUCT USED FOR UNKNOWN INDICATION
     Route: 065
  6. EUTHYROX [Concomitant]
     Active Substance: LEVOTHYROXINE SODIUM
     Indication: HYPOTHYROIDISM
     Dates: start: 1997

REACTIONS (10)
  - Hypotension [Recovered/Resolved]
  - Conjunctivitis [Recovered/Resolved]
  - Poor quality drug administered [Recovered/Resolved]
  - Blood cholesterol increased [Unknown]
  - Arrhythmia [Recovered/Resolved]
  - Arterial occlusive disease [Unknown]
  - Eye laser surgery [Unknown]
  - Pain in extremity [Recovered/Resolved]
  - Coronary arterial stent insertion [Recovered/Resolved]
  - Product physical issue [Unknown]

NARRATIVE: CASE EVENT DATE: 2007
